FAERS Safety Report 4733775-2 (Version None)
Quarter: 2005Q3

REPORT INFORMATION
  Report Type: 
  Country: None (occurrence: None)
  Receive Date: 20050729
  Receipt Date: 20050715
  Transmission Date: 20060218
  Serious: Yes (Hospitalization)
  Sender: FDA-Public Use
  Company Number: 2005-BP-12193RO

PATIENT
  Age: 84 Year
  Sex: Female

DRUGS (5)
  1. TAMOXIFEN CITRATE [Suspect]
     Indication: BREAST CANCER
  2. NIFEDIPINE [Suspect]
     Indication: HYPERTENSIVE CARDIOMYOPATHY
  3. FUROSEMIDE (FUROSEMIDE) [Concomitant]
  4. AMIODARONE HCL [Concomitant]
  5. LYSINE ACETYLSALICYLATE (ACETYLSALICYLLATE LYSINE) [Concomitant]

REACTIONS (2)
  - CUTANEOUS LUPUS ERYTHEMATOSUS [None]
  - PRURITUS [None]
